FAERS Safety Report 5999724-4 (Version None)
Quarter: 2008Q4

REPORT INFORMATION
  Report Type: 
  Country: None (occurrence: None)
  Receive Date: 20081215
  Receipt Date: 20081204
  Transmission Date: 20090506
  Serious: Yes (Other)
  Sender: FDA-Public Use
  Company Number: US-ROCHE-601020

PATIENT
  Age: 61 Year
  Sex: Female

DRUGS (3)
  1. BONIVA [Suspect]
     Indication: OSTEOPENIA
     Dosage: THERAPY STOPPED FOR A YEAR
     Route: 065
  2. BONIVA [Suspect]
     Route: 065
     Dates: start: 20081204
  3. VIACTIV [Concomitant]
     Dosage: PHYSICIAN WANTS HER TO TAKE 2,000 INTERNATIONAL UNITS OF VITAMIN D

REACTIONS (2)
  - BONE DENSITY DECREASED [None]
  - RENAL IMPAIRMENT [None]
